FAERS Safety Report 5195161-3 (Version None)
Quarter: 2006Q4

REPORT INFORMATION
  Report Type: 
  Country: None (occurrence: None)
  Receive Date: 20061229
  Receipt Date: 20061211
  Transmission Date: 20070319
  Serious: Yes (Hospitalization)
  Sender: FDA-Public Use
  Company Number: FR-BOEHRINGER INGELHEIM GMBH, GERMANY-2006-DE-06617GD

PATIENT
  Age: 41 Year
  Sex: Male

DRUGS (5)
  1. APTIVUS [Suspect]
     Indication: HIV TEST POSITIVE
     Dosage: TIPRANAVIR 1 G, RITONAVIR 200 MG
  2. ABACAVIR [Suspect]
     Indication: HIV TEST POSITIVE
  3. LAMIVUDINE [Suspect]
     Indication: HIV TEST POSITIVE
  4. DIDANOSINE [Suspect]
     Indication: HIV TEST POSITIVE
  5. SAQUINAVIR [Suspect]
     Indication: HIV TEST POSITIVE

REACTIONS (5)
  - BLOOD HIV RNA INCREASED [None]
  - KAPOSI'S SARCOMA AIDS RELATED [None]
  - SPLENIC HAEMORRHAGE [None]
  - SPLENIC RUPTURE [None]
  - SYNCOPE [None]
